FAERS Safety Report 5196651-X (Version None)
Quarter: 2006Q4

REPORT INFORMATION
  Report Type: 
  Country: None (occurrence: None)
  Receive Date: 20061227
  Receipt Date: 20061211
  Transmission Date: 20070319
  Serious: Yes (Other)
  Sender: FDA-Public Use
  Company Number: 2005092341

PATIENT
  Age: 31 Year
  Sex: Male

DRUGS (13)
  1. NEURONTIN [Suspect]
     Indication: DEPRESSION
     Dosage: 1200 MG (400 MG, 3 IN 1 D)
     Dates: start: 20000101, end: 20030101
  2. CARBON MONOXIDE (CARBON MONOXIDE) [Suspect]
     Indication: SUICIDE ATTEMPT
     Dosage: INHALATION
     Route: 055
     Dates: start: 20020701
  3. XANAX [Concomitant]
  4. ATACAND [Concomitant]
  5. DEPAKOTE [Concomitant]
  6. VYTORIN [Concomitant]
  7. AMBIEN [Concomitant]
  8. ATENOLOL [Concomitant]
  9. STRATTERA [Concomitant]
  10. PROPRANOLOL [Concomitant]
  11. WELLBUTRIN [Concomitant]
  12. HYDROCHLOROTHIAZIDE [Concomitant]
  13. ZYPREXA [Concomitant]

REACTIONS (7)
  - AMNESIA [None]
  - CARBON MONOXIDE POISONING [None]
  - DRUG INEFFECTIVE [None]
  - HYPOAESTHESIA [None]
  - INTENTIONAL SELF-INJURY [None]
  - SUICIDE ATTEMPT [None]
  - TREMOR [None]
